FAERS Safety Report 9780943 (Version 3)
Quarter: 2014Q1

REPORT INFORMATION
  Report Type: Report from Study
  Country: CA (occurrence: CA)
  Receive Date: 20131224
  Receipt Date: 20140212
  Transmission Date: 20141002
  Serious: Yes (Death, Hospitalization)
  Sender: FDA-Public Use
  Company Number: PHHY2013CA144230

PATIENT
  Age: 80 Year
  Sex: Male

DRUGS (1)
  1. CLOZARIL [Suspect]
     Indication: TREMOR
     Dosage: 12.5 MG, UNK
     Route: 048
     Dates: start: 20120416, end: 20131201

REACTIONS (4)
  - Death [Fatal]
  - Fall [Unknown]
  - Tremor [Unknown]
  - Drug ineffective [Unknown]
